FAERS Safety Report 17798845 (Version 1)
Quarter: 2020Q2

REPORT INFORMATION
  Report Type: Spontaneous
  Country: AU (occurrence: AU)
  Receive Date: 20200518
  Receipt Date: 20200518
  Transmission Date: 20200714
  Serious: Yes (Hospitalization)
  Sender: FDA-Public Use
  Company Number: AU-CELGENEUS-AUS-20200504008

PATIENT
  Age: 70 Year
  Sex: Female
  Weight: 67.1 kg

DRUGS (13)
  1. EPOETIN [Concomitant]
     Active Substance: ERYTHROPOIETIN
     Indication: ANAEMIA
     Dosage: 10000 MILLION
     Route: 058
     Dates: start: 2017
  2. TRANSEXAMIC ACID [Concomitant]
     Active Substance: TRANEXAMIC ACID
     Indication: HAEMORRHAGE
     Dosage: 4 GRAM
     Route: 048
     Dates: start: 2020
  3. PREGABALIN. [Concomitant]
     Active Substance: PREGABALIN
     Indication: SPINAL STENOSIS
     Dosage: 150 MILLIGRAM
     Route: 048
     Dates: start: 2017
  4. METOCLOPRAMIDE. [Concomitant]
     Active Substance: METOCLOPRAMIDE
     Indication: NAUSEA
     Route: 048
     Dates: start: 2020
  5. VALACICLOVIR [Concomitant]
     Active Substance: VALACYCLOVIR HYDROCHLORIDE
     Indication: ANTIVIRAL PROPHYLAXIS
     Dosage: 500 MILLIGRAM
     Route: 048
     Dates: start: 2020
  6. PREDNISOLONE. [Concomitant]
     Active Substance: PREDNISOLONE
     Indication: NEUROPATHY PERIPHERAL
     Route: 048
     Dates: start: 2000
  7. TEMAZEPAM. [Concomitant]
     Active Substance: TEMAZEPAM
     Indication: PROPHYLAXIS
     Route: 048
     Dates: start: 2020
  8. PRACINOSTAT [Concomitant]
     Active Substance: PRACINOSTAT
     Indication: ACUTE MYELOID LEUKAEMIA
     Route: 048
     Dates: start: 20200406, end: 20200424
  9. AZACITIDINE. [Suspect]
     Active Substance: AZACITIDINE
     Indication: ACUTE MYELOID LEUKAEMIA
     Dosage: 75 MILLIGRAM/SQ. METER
     Route: 058
     Dates: start: 20200406, end: 20200414
  10. SALBUTAMOL [Concomitant]
     Active Substance: ALBUTEROL
     Indication: UPPER RESPIRATORY TRACT INFECTION
     Dosage: 2 PUFF
     Route: 048
     Dates: start: 20200326
  11. PARACETAMOL [Concomitant]
     Active Substance: ACETAMINOPHEN
     Indication: SPINAL STENOSIS
     Route: 048
     Dates: start: 2017
  12. TAPENTADOL [Concomitant]
     Active Substance: TAPENTADOL
     Indication: SPINAL STENOSIS
     Dosage: 400 MILLIGRAM
     Route: 048
     Dates: start: 2017
  13. PANTOPRAZOLE [Concomitant]
     Active Substance: PANTOPRAZOLE
     Indication: GASTROOESOPHAGEAL REFLUX DISEASE
     Dosage: 80 MILLIGRAM
     Route: 048
     Dates: start: 2010

REACTIONS (1)
  - Hypovolaemia [Recovering/Resolving]

NARRATIVE: CASE EVENT DATE: 20200504
